FAERS Safety Report 8845966 (Version 3)
Quarter: 2014Q2

REPORT INFORMATION
  Report Type: Report from Study
  Country: FR (occurrence: FR)
  Receive Date: 20121017
  Receipt Date: 20140617
  Transmission Date: 20141212
  Serious: Yes (Hospitalization)
  Sender: FDA-Public Use
  Company Number: FR-GLAXOSMITHKLINE-B0728828C

PATIENT
  Age: 85 Year
  Sex: Male
  Weight: 76 kg

DRUGS (5)
  1. OFATUMUMAB [Suspect]
     Indication: B-CELL LYMPHOMA
     Dosage: 1G PER DAY
     Route: 065
     Dates: start: 20110429, end: 20110812
  2. CHOP CHEMOTHERAPY [Suspect]
     Indication: B-CELL LYMPHOMA
     Dosage: 1MG CYCLIC
     Route: 065
     Dates: start: 20110610
  3. BACTRIM [Concomitant]
     Indication: PROPHYLACTIC CHEMOTHERAPY
     Dates: start: 20110429
  4. LEDERFOLINE [Concomitant]
     Indication: PROPHYLACTIC CHEMOTHERAPY
     Dates: start: 20110429
  5. ZELITREX [Concomitant]
     Indication: PROPHYLACTIC CHEMOTHERAPY
     Dates: start: 20110429

REACTIONS (3)
  - Ileus [Recovered/Resolved]
  - Atrial flutter [Not Recovered/Not Resolved]
  - Febrile neutropenia [Recovered/Resolved]
